FAERS Safety Report 9908121 (Version 1)
Quarter: 2014Q1

REPORT INFORMATION
  Report Type: Spontaneous
  Country: US (occurrence: None)
  Receive Date: 20140212
  Receipt Date: 20140212
  Transmission Date: 20141002
  Serious: Yes (Disabling, Other)
  Sender: FDA-Public Use
  Company Number: None

PATIENT
  Age: 48 Year
  Sex: Male

DRUGS (3)
  1. CELLCEPT [Suspect]
     Indication: IMMUNOSUPPRESSANT DRUG THERAPY
     Dosage: 2 PILLS AM 2 PILLS PM
     Route: 048
  2. CELLCEPT [Suspect]
     Indication: RENAL TRANSPLANT
     Dosage: 2 PILLS AM 2 PILLS PM
     Route: 048
  3. CELLCEPT [Suspect]
     Dosage: 2 PILLS AM 2 PILLS PM
     Route: 048

REACTIONS (2)
  - Bone pain [None]
  - Fatigue [None]
